FAERS Safety Report 8530675-7 (Version None)
Quarter: 2012Q3

REPORT INFORMATION
  Report Type: 
  Country: None (occurrence: None)
  Receive Date: 20120723
  Receipt Date: 20120722
  Transmission Date: 20120928
  Serious: Yes (Other)
  Sender: FDA-Public Use
  Company Number: CN-ROCHE-1086382

PATIENT
  Age: 77 Year
  Sex: Female

DRUGS (13)
  1. MABTHERA [Suspect]
     Indication: DIFFUSE LARGE B-CELL LYMPHOMA STAGE II
     Dates: start: 20120410
  2. MABTHERA [Suspect]
     Indication: LYMPHOMA
     Dates: start: 20120320
  3. CYCLOPHOSPHAMIDE [Concomitant]
     Indication: LYMPHOMA
  4. VINCRISTINE [Concomitant]
     Indication: LYMPHOMA
  5. VINCRISTINE [Concomitant]
     Indication: DIFFUSE LARGE B-CELL LYMPHOMA STAGE II
  6. EPIRUBICIN [Concomitant]
     Indication: LYMPHOMA
  7. CYCLOPHOSPHAMIDE [Concomitant]
     Dates: start: 20120504
  8. EPIRUBICIN [Concomitant]
     Indication: DIFFUSE LARGE B-CELL LYMPHOMA STAGE II
  9. EPIRUBICIN [Concomitant]
  10. PREDNISONE [Concomitant]
     Indication: LYMPHOMA
  11. CYCLOPHOSPHAMIDE [Concomitant]
     Indication: DIFFUSE LARGE B-CELL LYMPHOMA STAGE II
  12. PREDNISONE [Concomitant]
  13. PREDNISONE [Concomitant]
     Indication: DIFFUSE LARGE B-CELL LYMPHOMA STAGE II

REACTIONS (5)
  - DISCOMFORT [None]
  - DRUG INEFFECTIVE [None]
  - INTERSTITIAL LUNG DISEASE [None]
  - LISTLESS [None]
  - PRODUCT SOLUBILITY ABNORMAL [None]
